FAERS Safety Report 8061868-3 (Version None)
Quarter: 2012Q1

REPORT INFORMATION
  Report Type: 
  Country: None (occurrence: None)
  Receive Date: 20120117
  Receipt Date: 20120110
  Transmission Date: 20120608
  Serious: Yes (Death)
  Sender: FDA-Public Use
  Company Number: 1000026993

PATIENT
  Age: 31 Year
  Sex: Male

DRUGS (5)
  1. ALPRAZOLAM [Suspect]
  2. PROPOXYPHENE (DEXTROPROPOXYPHENE) [Suspect]
  3. CARISOPRODOL [Suspect]
  4. LAMOTRIGINE [Suspect]
  5. PROPRANOLOL HYDROCHLORIDE [Suspect]

REACTIONS (2)
  - COMPLETED SUICIDE [None]
  - CARDIO-RESPIRATORY ARREST [None]
